FAERS Safety Report 23939103 (Version 2)
Quarter: 2024Q3

REPORT INFORMATION
  Report Type: Spontaneous
  Country: US (occurrence: US)
  Receive Date: 20240604
  Receipt Date: 20240924
  Transmission Date: 20241016
  Serious: No
  Sender: ABBVIE
  Company Number: US-ABBVIE-5786600

PATIENT
  Sex: Female

DRUGS (2)
  1. LUMIGAN [Suspect]
     Active Substance: BIMATOPROST
     Indication: Product used for unknown indication
     Route: 047
  2. LUMIGAN [Suspect]
     Active Substance: BIMATOPROST
     Route: 047

REACTIONS (3)
  - Arthritis [Unknown]
  - Arthralgia [Unknown]
  - Tendonitis [Unknown]
